FAERS Safety Report 9306455 (Version 1)
Quarter: 2013Q2

REPORT INFORMATION
  Report Type: Spontaneous
  Country: US (occurrence: US)
  Receive Date: 20130523
  Receipt Date: 20130523
  Transmission Date: 20140414
  Serious: No
  Sender: FDA-Public Use
  Company Number: US-ASTRAZENECA-2013SE32753

PATIENT
  Age: 86 Year
  Sex: Male

DRUGS (4)
  1. CRESTOR [Suspect]
     Indication: BLOOD CHOLESTEROL INCREASED
     Route: 048
  2. REVLIMID [Suspect]
     Indication: MYELODYSPLASTIC SYNDROME
     Dosage: 5 MG , 15 OUT OF 28 DAYS
     Route: 048
     Dates: start: 20110729
  3. COQ- 10 [Concomitant]
  4. CLOTRIANAZOLE [Concomitant]
     Indication: RASH

REACTIONS (5)
  - Rhinorrhoea [Unknown]
  - Blood cholesterol increased [Unknown]
  - Myalgia [Unknown]
  - Muscle spasms [Unknown]
  - Drug ineffective [Unknown]
